FAERS Safety Report 17027470 (Version 2)
Quarter: 2019Q4

REPORT INFORMATION
  Report Type: Spontaneous
  Country: US (occurrence: US)
  Receive Date: 20191113
  Receipt Date: 20191216
  Transmission Date: 20200122
  Serious: Yes (Hospitalization, Other)
  Sender: FDA-Public Use
  Company Number: US-GLAXOSMITHKLINE-US2019204813

PATIENT
  Age: 69 Year
  Sex: Female

DRUGS (2)
  1. OXYGEN THERAPY [Concomitant]
     Active Substance: OXYGEN
     Dosage: UNK
     Route: 065
  2. VENTOLIN HFA [Suspect]
     Active Substance: ALBUTEROL SULFATE
     Indication: EMPHYSEMA
     Dosage: UNK
     Route: 065
     Dates: start: 2014

REACTIONS (3)
  - Product complaint [Unknown]
  - Pneumonia [Recovering/Resolving]
  - Product dose omission [Unknown]

NARRATIVE: CASE EVENT DATE: 201909
